FAERS Safety Report 7672897 (Version 4)
Quarter: 2012Q4

REPORT INFORMATION
  Report Type: Report from Study
  Country: BR (occurrence: BR)
  Receive Date: 20101117
  Receipt Date: 20121004
  Transmission Date: 20130627
  Serious: Yes (Other)
  Sender: FDA-Public Use
  Company Number: BR-AMGEN-BRASP2010004047

PATIENT
  Age: 48 Year
  Sex: Female
  Weight: 74 kg

DRUGS (14)
  1. ETANERCEPT [Suspect]
     Indication: PSORIATIC ARTHROPATHY
     Dosage: 25 mg, 2 times/wk
     Route: 058
     Dates: start: 20100818, end: 201011
  2. ETANERCEPT [Suspect]
     Dosage: 50 mg, qwk
     Dates: start: 201110
  3. AMITRIL [Concomitant]
     Dosage: UNK
  4. RIVOTRIL [Concomitant]
     Dosage: at night
  5. IBUPROFEN [Concomitant]
     Dosage: UNK
  6. HYDROCHLOROTHIAZIDE [Concomitant]
     Dosage: UNK
  7. METHOTREXATE [Concomitant]
     Dosage: 3 tablets per week
  8. AMITRIPTYLINE [Concomitant]
     Dosage: 25 mg, 2x/day
  9. FOLIC ACID [Concomitant]
     Dosage: once daily
  10. COMPLEXO B                         /00003501/ [Concomitant]
     Dosage: UNK
  11. DIPIRONA [Concomitant]
     Dosage: UNK
  12. FLUOXETINE [Concomitant]
     Dosage: UNK
  13. CLONAZEPAM [Concomitant]
     Dosage: 25 mg, UNK
  14. SIMVASTATIN [Concomitant]
     Dosage: UNK

REACTIONS (10)
  - Intervertebral disc protrusion [Not Recovered/Not Resolved]
  - Back pain [Not Recovered/Not Resolved]
  - Arthralgia [Not Recovered/Not Resolved]
  - Joint injury [Not Recovered/Not Resolved]
  - Angiopathy [Not Recovered/Not Resolved]
  - Erythema [Not Recovered/Not Resolved]
  - Injection site mass [Unknown]
  - Drug effect incomplete [Unknown]
  - Hypersensitivity [Not Recovered/Not Resolved]
  - Limb injury [Unknown]
